FAERS Safety Report 17393129 (Version 1)
Quarter: 2020Q1

REPORT INFORMATION
  Report Type: Spontaneous
  Country: US (occurrence: US)
  Receive Date: 20200208
  Receipt Date: 20200208
  Transmission Date: 20200409
  Serious: Yes (Hospitalization, Other)
  Sender: FDA-Public Use
  Company Number: US-QUAGEN PHARMA LLC-2020QUALIT00021

PATIENT
  Age: 53 Year
  Sex: Female

DRUGS (1)
  1. ALBUTEROL SULFATE SYRUP [Suspect]
     Active Substance: ALBUTEROL SULFATE

REACTIONS (4)
  - Hypotension [Unknown]
  - Respiratory failure [Unknown]
  - Stress cardiomyopathy [Unknown]
  - Hyperhidrosis [Unknown]
